FAERS Safety Report 9308155 (Version 1)
Quarter: 2013Q2

REPORT INFORMATION
  Report Type: Spontaneous
  Country: US (occurrence: US)
  Receive Date: 20130524
  Receipt Date: 20130524
  Transmission Date: 20140414
  Serious: Yes (Hospitalization)
  Sender: FDA-Public Use
  Company Number: US-SANOFI-AVENTIS-2013SA051061

PATIENT
  Age: 79 Year
  Sex: Male
  Weight: 87 kg

DRUGS (7)
  1. PLAVIX [Suspect]
     Indication: STENT PLACEMENT
     Route: 048
     Dates: start: 20100512
  2. XARELTO [Suspect]
     Indication: ATRIAL FIBRILLATION
     Route: 048
     Dates: start: 20130219, end: 20130317
  3. XARELTO [Suspect]
     Indication: ATRIAL FIBRILLATION
     Route: 048
     Dates: start: 20130318
  4. METOPROLOL SUCCINATE [Suspect]
     Indication: STENT PLACEMENT
     Route: 048
     Dates: start: 20100512
  5. METOPROLOL SUCCINATE [Suspect]
     Indication: STENT PLACEMENT
     Route: 048
     Dates: start: 20121105
  6. LIPITOR [Concomitant]
     Dates: start: 20100512
  7. DIGOXIN [Concomitant]
     Indication: ATRIAL FIBRILLATION
     Route: 048
     Dates: start: 20130219

REACTIONS (7)
  - Hypotension [Unknown]
  - Hypertension [Unknown]
  - Dizziness [Recovering/Resolving]
  - Haemorrhage [Unknown]
  - Mouth haemorrhage [Unknown]
  - Inappropriate schedule of drug administration [Unknown]
  - Drug prescribing error [Unknown]
